FAERS Safety Report 12450092 (Version 1)
Quarter: 2016Q2

REPORT INFORMATION
  Report Type: Spontaneous
  Country: US (occurrence: US)
  Receive Date: 20160609
  Receipt Date: 20160609
  Transmission Date: 20160815
  Serious: No
  Sender: FDA-Public Use
  Company Number: US-HORIZON-ACT-0138-2016

PATIENT
  Age: 64 Year
  Sex: Male

DRUGS (1)
  1. ACTIMMUNE [Suspect]
     Active Substance: INTERFERON GAMMA-1B
     Indication: MYCOSIS FUNGOIDES
     Dosage: 50 ?G THREE TIMES WEEKLY
     Route: 058
     Dates: start: 20160321, end: 20160531

REACTIONS (2)
  - Skin reaction [Unknown]
  - Off label use [Unknown]

NARRATIVE: CASE EVENT DATE: 20160531
